FAERS Safety Report 6887006-8 (Version None)
Quarter: 2010Q3

REPORT INFORMATION
  Report Type: 
  Country: None (occurrence: None)
  Receive Date: 20100730
  Receipt Date: 20100722
  Transmission Date: 20110219
  Serious: Yes (Other)
  Sender: FDA-Public Use
  Company Number: FR-SANOFI-AVENTIS-2010SA042843

PATIENT
  Age: 55 Year
  Sex: Male

DRUGS (9)
  1. TOPALGIC LP [Suspect]
     Indication: PAIN
     Route: 048
  2. ASPEGIC 1000 [Suspect]
     Route: 048
  3. KAYEXALATE [Suspect]
     Route: 048
  4. ESIDRIX [Suspect]
     Route: 048
  5. TAHOR [Suspect]
     Route: 048
  6. KINERET [Suspect]
     Indication: ERDHEIM-CHESTER DISEASE
     Route: 058
  7. RAMIPRIL [Suspect]
     Route: 048
  8. MEDIATENSYL [Suspect]
     Route: 048
  9. OMEPRAZOLE [Suspect]
     Route: 048

REACTIONS (2)
  - HYPOAESTHESIA [None]
  - PAIN IN EXTREMITY [None]
